FAERS Safety Report 5542568-8 (Version None)
Quarter: 2007Q4

REPORT INFORMATION
  Report Type: 
  Country: None (occurrence: None)
  Receive Date: 20071205
  Receipt Date: 20071205
  Transmission Date: 20080405
  Serious: Yes (Hospitalization)
  Sender: FDA-Public Use
  Company Number: None

PATIENT
  Sex: Female

DRUGS (2)
  1. FLECAINIDE ACETATE [Suspect]
     Indication: ARRHYTHMIA
     Dosage: 50MG  TWICE DAILY  PO
     Route: 048
  2. AZITHROMYCIN [Suspect]
     Indication: INFECTION
     Dosage: 500MG X 1D, THEN 250MG X 4D  ONCE DAILY  PO
     Route: 048
     Dates: start: 20071125, end: 20071125

REACTIONS (1)
  - ARRHYTHMIA [None]
